FAERS Safety Report 8407406-4 (Version None)
Quarter: 2012Q2

REPORT INFORMATION
  Report Type: 
  Country: None (occurrence: None)
  Receive Date: 20120323
  Receipt Date: 20111130
  Transmission Date: 20120825
  Serious: Yes (Other)
  Sender: FDA-Public Use
  Company Number: 163-21880-11120198

PATIENT
  Age: 76 Year
  Sex: Female
  Weight: 49.8957 kg

DRUGS (3)
  1. REVLIMID [Suspect]
     Indication: MULTIPLE MYELOMA
     Dosage: 25 MG, 1 IN 1 D, PO ; 10MG-25MG, DAILY, PO ; 10 MG, DAILY X 21 DAYS, PO
     Route: 048
     Dates: start: 20091023, end: 20100318
  2. REVLIMID [Suspect]
     Indication: MULTIPLE MYELOMA
     Dosage: 25 MG, 1 IN 1 D, PO ; 10MG-25MG, DAILY, PO ; 10 MG, DAILY X 21 DAYS, PO
     Route: 048
     Dates: start: 20100611, end: 20110318
  3. REVLIMID [Suspect]
     Indication: MULTIPLE MYELOMA
     Dosage: 25 MG, 1 IN 1 D, PO ; 10MG-25MG, DAILY, PO ; 10 MG, DAILY X 21 DAYS, PO
     Route: 048
     Dates: start: 20110721

REACTIONS (4)
  - DECREASED APPETITE [None]
  - ANAEMIA [None]
  - FATIGUE [None]
  - THROMBOCYTOPENIA [None]
